FAERS Safety Report 5105574-3 (Version None)
Quarter: 2006Q3

REPORT INFORMATION
  Report Type: 
  Country: None (occurrence: None)
  Receive Date: 20060915
  Receipt Date: 20060906
  Transmission Date: 20061208
  Serious: Yes (Hospitalization)
  Sender: FDA-Public Use
  Company Number: US-JNJFOC-20060901446

PATIENT
  Sex: Male
  Weight: 118.39 kg

DRUGS (4)
  1. DURAGESIC-100 [Suspect]
     Indication: BACK PAIN
     Route: 062
     Dates: start: 20010101
  2. LORTAB [Concomitant]
     Indication: BACK PAIN
     Dosage: 10/500
     Route: 048
     Dates: start: 20000101
  3. AVANDIA [Concomitant]
     Indication: DIABETES MELLITUS
     Route: 048
     Dates: start: 19970101
  4. GLUCOPHAGE [Concomitant]
     Indication: DIABETES MELLITUS
     Route: 048

REACTIONS (1)
  - BLOOD GLUCOSE DECREASED [None]
